FAERS Safety Report 9741575 (Version 1)
Quarter: 2013Q4

REPORT INFORMATION
  Report Type: Spontaneous
  Country: FR (occurrence: FR)
  Receive Date: 20131210
  Receipt Date: 20131210
  Transmission Date: 20140711
  Serious: Yes (Other)
  Sender: FDA-Public Use
  Company Number: FR-ROCHE-1316494

PATIENT
  Age: 50 Year
  Sex: Male

DRUGS (1)
  1. ROACTEMRA [Suspect]
     Indication: ANKYLOSING SPONDYLITIS
     Route: 065

REACTIONS (2)
  - Aortic aneurysm [Unknown]
  - Aortic aneurysm [Unknown]
